FAERS Safety Report 25548802 (Version 1)
Quarter: 2025Q3

REPORT INFORMATION
  Report Type: Other
  Country: IN (occurrence: IN)
  Receive Date: 20250714
  Receipt Date: 20250714
  Transmission Date: 20251020
  Serious: Yes (Hospitalization, Congenital Anomaly, Other)
  Sender: ANI
  Company Number: IN-ANIPHARMA-023570

PATIENT

DRUGS (3)
  1. CYCLOPHOSPHAMIDE [Suspect]
     Active Substance: CYCLOPHOSPHAMIDE
     Indication: Product used for unknown indication
     Route: 064
  2. DOXORUBICIN [Concomitant]
     Active Substance: DOXORUBICIN
     Indication: Product used for unknown indication
     Route: 064
  3. DOCETAXEL [Concomitant]
     Active Substance: DOCETAXEL
     Indication: Product used for unknown indication
     Route: 064

REACTIONS (6)
  - Congenital central nervous system anomaly [Unknown]
  - Septum pellucidum agenesis [Unknown]
  - Brain malformation [Unknown]
  - Limb hypoplasia congenital [Unknown]
  - Limb hypoplasia congenital [Unknown]
  - Foetal exposure during pregnancy [Unknown]
